FAERS Safety Report 6933112-9 (Version None)
Quarter: 2010Q3

REPORT INFORMATION
  Report Type: 
  Country: None (occurrence: None)
  Receive Date: 20100819
  Receipt Date: 20100812
  Transmission Date: 20110219
  Serious: Yes (Death, Other)
  Sender: FDA-Public Use
  Company Number: GB-BRISTOL-MYERS SQUIBB COMPANY-15245111

PATIENT
  Age: 80 Year
  Sex: Male

DRUGS (1)
  1. MITOMYCIN [Suspect]
     Indication: BLADDER TRANSITIONAL CELL CARCINOMA
     Dosage: FORMULATION:INJ
     Route: 043
     Dates: start: 20091021, end: 20091021

REACTIONS (4)
  - BRONCHOPNEUMONIA [None]
  - RENAL IMPAIRMENT [None]
  - RESIDUAL URINE VOLUME INCREASED [None]
  - URINARY TRACT INFECTION STAPHYLOCOCCAL [None]
